FAERS Safety Report 14457413 (Version 4)
Quarter: 2021Q1

REPORT INFORMATION
  Report Type: Spontaneous
  Country: US (occurrence: US)
  Receive Date: 20180130
  Receipt Date: 20210114
  Transmission Date: 20210419
  Serious: No
  Sender: FDA-Public Use
  Company Number: US-PFIZER INC-2017134215

PATIENT
  Age: 14 Year
  Sex: Male
  Weight: 49.89 kg

DRUGS (4)
  1. GENOTROPIN [Suspect]
     Active Substance: SOMATROPIN
     Indication: SHORT STATURE
     Dosage: UNK
  2. GENOTROPIN [Suspect]
     Active Substance: SOMATROPIN
     Dosage: 2.7 (UNSPECIFIED UNITS), SIX DAYS A WEEK
     Route: 030
     Dates: start: 201505
  3. LEVOTHYROXINE. [Concomitant]
     Active Substance: LEVOTHYROXINE
     Indication: HYPOTHYROIDISM
     Dosage: 50 UG, 1X/DAY
  4. GENOTROPIN [Suspect]
     Active Substance: SOMATROPIN
     Dosage: 3.6 MG, (6 DAYS PER WEEK)
     Dates: start: 201610

REACTIONS (5)
  - Drug ineffective [Unknown]
  - Incorrect route of product administration [Unknown]
  - Off label use [Unknown]
  - Product dose omission issue [Unknown]
  - Product prescribing error [Unknown]
